FAERS Safety Report 8455229-2 (Version None)
Quarter: 2012Q2

REPORT INFORMATION
  Report Type: 
  Country: None (occurrence: None)
  Receive Date: 20120621
  Receipt Date: 20120615
  Transmission Date: 20120825
  Serious: Yes (Hospitalization)
  Sender: FDA-Public Use
  Company Number: FR-ASTELLAS-2012EU004277

PATIENT
  Sex: Male

DRUGS (6)
  1. JOSACINE [Interacting]
     Indication: BRONCHITIS
     Dosage: 500 MG, BID
     Route: 048
     Dates: start: 20120426
  2. ESOMEPRAZOLE [Concomitant]
     Dosage: 20 MG, UNKNOWN/D
     Route: 065
  3. OLMESARTAN MEDOXOMIL [Concomitant]
     Dosage: 40 MG, UNKNOWN/D
     Route: 065
  4. PRAZOSIN HCL [Concomitant]
     Dosage: 5 MG, UNKNOWN/D
     Route: 065
  5. VESICARE [Suspect]
     Indication: INCONTINENCE
     Dosage: 1 DF, UID/QD
     Route: 048
     Dates: start: 20120306, end: 20120510
  6. ASPIRIN [Concomitant]
     Dosage: 75 MG, UNKNOWN/D
     Route: 065

REACTIONS (3)
  - DRUG INTERACTION [None]
  - CONFUSIONAL STATE [None]
  - DRY MOUTH [None]
